FAERS Safety Report 15452773 (Version 1)
Quarter: 2018Q4

REPORT INFORMATION
  Report Type: Spontaneous
  Country: AU (occurrence: AU)
  Receive Date: 20181001
  Receipt Date: 20181001
  Transmission Date: 20190204
  Serious: Yes (Other)
  Sender: FDA-Public Use
  Company Number: AU-BAYER-2018-149267

PATIENT
  Age: 51 Year
  Sex: Female

DRUGS (5)
  1. PRIMOLUT N [Suspect]
     Active Substance: NORETHINDRONE
     Dosage: 2.5 MG, QD
     Route: 048
     Dates: start: 20180625
  2. EUTROXSIG [Concomitant]
     Active Substance: LEVOTHYROXINE SODIUM
     Indication: HYPOTHYROIDISM
     Dosage: DAILY DOSE 100 MG
  3. MIRENA [Suspect]
     Active Substance: LEVONORGESTREL
     Dosage: 20 MCG/24HR, CONT
     Route: 015
     Dates: start: 20180621, end: 20180625
  4. EUTROXSIG [Concomitant]
     Active Substance: LEVOTHYROXINE SODIUM
     Indication: HYPOTHYROIDISM
     Dosage: DAILY DOSE 75 MG
  5. PRIMOLUT N [Suspect]
     Active Substance: NORETHINDRONE
     Dosage: 03 DF, UNK
     Route: 048
     Dates: start: 20180608, end: 20180620

REACTIONS (7)
  - Hyperthyroidism [Recovering/Resolving]
  - Anxiety [Recovering/Resolving]
  - Heart rate increased [Recovering/Resolving]
  - Insomnia [Recovering/Resolving]
  - Device expulsion [None]
  - Malaise [Recovering/Resolving]
  - Postural orthostatic tachycardia syndrome [None]

NARRATIVE: CASE EVENT DATE: 20180625
